FAERS Safety Report 8778709 (Version 1)
Quarter: 2012Q4

REPORT INFORMATION
  Report Type: 
  Country: US (occurrence: US)
  Receive Date: 20120912
  Receipt Date: 20120912
  Transmission Date: 20130627
  Serious: No
  Sender: FDA-Public Use
  Company Number: US-PFIZER INC-2012221356

PATIENT
  Age: 56 Year
  Sex: Female
  Weight: 145 kg

DRUGS (3)
  1. REVATIO [Suspect]
     Indication: PULMONARY HYPERTENSION
     Dosage: 20 mg, 3x/day
     Dates: start: 20120625, end: 201207
  2. DEPAKOTE [Concomitant]
     Indication: CONVULSION
     Dosage: 500 mg, daily
  3. METHYLPREDNISOLONE [Concomitant]
     Indication: HYPERSENSITIVITY
     Dosage: UNK
     Route: 048
     Dates: start: 201208, end: 201208

REACTIONS (4)
  - Off label use [Unknown]
  - Hypersensitivity [Recovering/Resolving]
  - Pruritus [Recovering/Resolving]
  - Erythema [Recovering/Resolving]
